FAERS Safety Report 8557503-8 (Version None)
Quarter: 2012Q3

REPORT INFORMATION
  Report Type: 
  Country: None (occurrence: None)
  Receive Date: 20120725
  Receipt Date: 20120725
  Transmission Date: 20120928
  Serious: No
  Sender: FDA-Public Use
  Company Number: None

PATIENT
  Sex: Female
  Weight: 7.7111 kg

DRUGS (2)
  1. ACETAMINOPHEN [Suspect]
     Indication: PYREXIA
     Dates: start: 20120701, end: 20120701
  2. ACETAMINOPHEN [Suspect]
     Indication: TEETHING
     Dates: start: 20120701, end: 20120701

REACTIONS (5)
  - VOMITING [None]
  - DYSGEUSIA [None]
  - PRODUCT TAMPERING [None]
  - MALAISE [None]
  - COUGH [None]
